FAERS Safety Report 10274072 (Version 1)
Quarter: 2014Q3

REPORT INFORMATION
  Report Type: Spontaneous
  Country: US (occurrence: US)
  Receive Date: 20140702
  Receipt Date: 20140702
  Transmission Date: 20150326
  Serious: Yes (Other)
  Sender: FDA-Public Use
  Company Number: US-BAYER-2014-096683

PATIENT
  Sex: Female

DRUGS (1)
  1. MIRENA [Suspect]
     Active Substance: LEVONORGESTREL
     Dosage: 20 MCG/24HR, CONT
     Route: 015

REACTIONS (10)
  - Nausea [None]
  - Tinnitus [None]
  - Pain [None]
  - Visual impairment [None]
  - Vision blurred [None]
  - Papilloedema [None]
  - Dizziness [None]
  - Injury [None]
  - Intracranial pressure increased [None]
  - Migraine [None]
